FAERS Safety Report 9643243 (Version 1)
Quarter: 2013Q4

REPORT INFORMATION
  Report Type: Spontaneous
  Country: FR (occurrence: FR)
  Receive Date: 20131024
  Receipt Date: 20131024
  Transmission Date: 20140711
  Serious: Yes (Hospitalization, Other)
  Sender: FDA-Public Use
  Company Number: FR-BAYER-2013-126322

PATIENT
  Age: 24 Year
  Sex: Female

DRUGS (4)
  1. ADALATE [Suspect]
     Dosage: UNK
     Route: 048
     Dates: start: 20130626, end: 20130701
  2. TARDYFERON [Suspect]
     Dosage: UNK
     Route: 048
     Dates: start: 20130626
  3. MAG 2 [Suspect]
     Dosage: UNK
     Route: 048
     Dates: start: 20130626
  4. CELESTENE [Suspect]
     Indication: THREATENED LABOUR
     Dosage: UNK
     Dates: start: 20130626

REACTIONS (1)
  - Toxic skin eruption [Recovering/Resolving]
